FAERS Safety Report 9507675 (Version 2)
Quarter: 2013Q3

REPORT INFORMATION
  Report Type: Spontaneous
  Country: DE (occurrence: DE)
  Receive Date: 20130909
  Receipt Date: 20130909
  Transmission Date: 20140515
  Serious: Yes (Hospitalization)
  Sender: FDA-Public Use
  Company Number: DE-ELI_LILLY_AND_COMPANY-DE201307010273

PATIENT
  Age: 42 Year
  Sex: Female

DRUGS (5)
  1. CYMBALTA [Suspect]
     Indication: DEPRESSION
     Dosage: UNK
     Route: 048
     Dates: start: 201201
  2. PANTOZOL [Concomitant]
     Dosage: 40 MG, QD
  3. MEBEVERINE [Concomitant]
     Dosage: 135 MG, TID
  4. ESTRADIOL [Concomitant]
     Dosage: 50 UG, 2/W
  5. PROTHAZIN [Concomitant]
     Dosage: 25 MG, PRN

REACTIONS (5)
  - Drug abuse [Unknown]
  - Alcohol abuse [Recovered/Resolved]
  - Urine amphetamine positive [Not Recovered/Not Resolved]
  - Dizziness [Recovered/Resolved]
  - Nausea [Recovered/Resolved]
